FAERS Safety Report 25051070 (Version 2)
Quarter: 2025Q1

REPORT INFORMATION
  Report Type: Report from Study
  Country: BR (occurrence: BR)
  Receive Date: 20250307
  Receipt Date: 20250307
  Transmission Date: 20250409
  Serious: Yes (Hospitalization, Other)
  Sender: BAYER HEALTHCARE PHARMACEUTICALS INC.
  Company Number: BR-BAYER-2025A026991

PATIENT
  Age: 67 Year
  Sex: Male

DRUGS (13)
  1. STIVARGA [Suspect]
     Active Substance: REGORAFENIB MONOHYDRATE
     Indication: Colorectal cancer
     Dosage: 120 MG, QD FOR 3 WEEKS AND THEN TAKES A WEEK OFF
     Dates: start: 20250204
  2. METHADONE [Suspect]
     Active Substance: METHADONE HYDROCHLORIDE
     Indication: Analgesic therapy
     Dosage: 5 MG, QD
     Dates: start: 202412
  3. METHADONE [Suspect]
     Active Substance: METHADONE HYDROCHLORIDE
     Indication: Analgesic therapy
     Dosage: 10 MG, QD
  4. METHADONE [Suspect]
     Active Substance: METHADONE HYDROCHLORIDE
     Indication: Analgesic therapy
     Dosage: 15 MG, QD
  5. METHADONE [Suspect]
     Active Substance: METHADONE HYDROCHLORIDE
     Indication: Analgesic therapy
     Dosage: 20 MG, QD
  6. DECADRON [Concomitant]
     Active Substance: DEXAMETHASONE
     Indication: Hormone replacement therapy
  7. DECADRON [Concomitant]
     Active Substance: DEXAMETHASONE
     Indication: Hormone replacement therapy
  8. TAMSULOSIN [Concomitant]
     Active Substance: TAMSULOSIN
     Indication: Dysuria
     Dates: start: 202501
  9. TAMSULOSIN [Concomitant]
     Active Substance: TAMSULOSIN
     Indication: Prostatic disorder
  10. TAMSULOSIN [Concomitant]
     Active Substance: TAMSULOSIN
     Indication: Dysuria
  11. TAMSULOSIN [Concomitant]
     Active Substance: TAMSULOSIN
     Indication: Inguinal hernia
  12. TAMSULOSIN [Concomitant]
     Active Substance: TAMSULOSIN
     Indication: Hydrocele
  13. PURAN [Concomitant]
     Active Substance: LEVOTHYROXINE SODIUM
     Indication: Hormone replacement therapy
     Dates: start: 2015

REACTIONS (17)
  - Immunodeficiency [Not Recovered/Not Resolved]
  - Paraesthesia [Not Recovered/Not Resolved]
  - Spinal cord neoplasm [None]
  - Mobility decreased [None]
  - Platelet count decreased [None]
  - Malocclusion [Not Recovered/Not Resolved]
  - Hypoaesthesia [Not Recovered/Not Resolved]
  - Cerebral disorder [None]
  - Dizziness [Not Recovered/Not Resolved]
  - Headache [Not Recovered/Not Resolved]
  - Red blood cell count decreased [Not Recovered/Not Resolved]
  - Visual impairment [Not Recovered/Not Resolved]
  - Spinal pain [None]
  - Gait disturbance [None]
  - Pain [None]
  - Pain in extremity [None]
  - Product use issue [None]

NARRATIVE: CASE EVENT DATE: 20250201
